FAERS Safety Report 16906528 (Version 1)
Quarter: 2019Q4

REPORT INFORMATION
  Report Type: Spontaneous
  Country: US (occurrence: US)
  Receive Date: 20191011
  Receipt Date: 20191011
  Transmission Date: 20200122
  Serious: Yes (Hospitalization)
  Sender: FDA-Public Use
  Company Number: US-ACCORD-156814

PATIENT
  Age: 59 Year
  Sex: Male

DRUGS (2)
  1. MITOMYCIN. [Suspect]
     Active Substance: MITOMYCIN
     Indication: BLADDER TRANSITIONAL CELL CARCINOMA
  2. NITROFURANTOIN/NITROFURANTOIN SODIUM [Concomitant]
     Indication: ENTEROCOCCAL INFECTION

REACTIONS (2)
  - Dystrophic calcification [Unknown]
  - Off label use [Unknown]
